FAERS Safety Report 5659684-2 (Version None)
Quarter: 2008Q1

REPORT INFORMATION
  Report Type: 
  Country: None (occurrence: None)
  Receive Date: 20080311
  Receipt Date: 20070815
  Transmission Date: 20080703
  Serious: Yes (Other)
  Sender: FDA-Public Use
  Company Number: US-BAYER-200710504BCC

PATIENT
  Age: 86 Year
  Sex: Female
  Weight: 68 kg

DRUGS (6)
  1. ALEVE [Suspect]
     Indication: BACK PAIN
     Dosage: TOTAL DAILY DOSE: 220 MG  UNIT DOSE: 220 MG
     Route: 048
     Dates: start: 20070212
  2. ALEVE [Suspect]
     Dosage: UNIT DOSE: 220 MG
     Route: 048
     Dates: start: 20070213
  3. PAXIL [Concomitant]
  4. ATIVAN [Concomitant]
  5. ZESTRIL [Concomitant]
  6. PREVACID [Concomitant]

REACTIONS (2)
  - FEELING ABNORMAL [None]
  - HALLUCINATION [None]
